FAERS Safety Report 9769114 (Version 2)
Quarter: 2013Q4

REPORT INFORMATION
  Report Type: Spontaneous
  Country: US (occurrence: US)
  Receive Date: 20131218
  Receipt Date: 20131218
  Transmission Date: 20140711
  Serious: Yes (Hospitalization)
  Sender: FDA-Public Use
  Company Number: 2012SP000622

PATIENT
  Age: 18 Year
  Sex: Male

DRUGS (4)
  1. VANCOMYCIN [Suspect]
     Indication: STAPHYLOCOCCAL INFECTION
     Route: 042
  2. VANCOMYCIN [Suspect]
     Indication: STAPHYLOCOCCUS TEST POSITIVE
     Route: 042
  3. VANCOMYCIN [Suspect]
     Indication: STAPHYLOCOCCAL INFECTION
     Route: 042
  4. VANCOMYCIN [Suspect]
     Indication: STAPHYLOCOCCUS TEST POSITIVE
     Route: 042

REACTIONS (3)
  - Neutropenia [Recovered/Resolved]
  - Leukopenia [Recovered/Resolved]
  - Pruritus generalised [Recovered/Resolved]
